FAERS Safety Report 16839659 (Version 2)
Quarter: 2019Q4

REPORT INFORMATION
  Report Type: Report from Study
  Country: US (occurrence: US)
  Receive Date: 20190923
  Receipt Date: 20191118
  Transmission Date: 20200122
  Serious: Yes (Other)
  Sender: FDA-Public Use
  Company Number: US-GILEAD-2019-0428451

PATIENT
  Age: 62 Year
  Sex: Male

DRUGS (3)
  1. SILDENAFIL. [Concomitant]
     Active Substance: SILDENAFIL
  2. TYVASO [Concomitant]
     Active Substance: TREPROSTINIL
  3. AMBRISENTAN [Suspect]
     Active Substance: AMBRISENTAN
     Indication: PRODUCT USED FOR UNKNOWN INDICATION
     Dosage: 10 MG, QD
     Route: 048
     Dates: start: 20170209

REACTIONS (8)
  - Anxiety [Unknown]
  - Erectile dysfunction [Not Recovered/Not Resolved]
  - Dysuria [Unknown]
  - Eye pain [Unknown]
  - Dry eye [Unknown]
  - Cataract [Not Recovered/Not Resolved]
  - Depression [Unknown]
  - Amnesia [Unknown]
